FAERS Safety Report 7959878-7 (Version None)
Quarter: 2011Q4

REPORT INFORMATION
  Report Type: 
  Country: None (occurrence: None)
  Receive Date: 20111206
  Receipt Date: 20111128
  Transmission Date: 20120403
  Serious: Yes (Other)
  Sender: FDA-Public Use
  Company Number: PHHY2011JP104735

PATIENT
  Age: 36 Year
  Sex: Female
  Weight: 44 kg

DRUGS (1)
  1. CEFTRIAXONE SODIUM [Suspect]
     Indication: PYELONEPHRITIS ACUTE
     Dosage: 1 G, QD
     Route: 041
     Dates: start: 20111108, end: 20111108

REACTIONS (2)
  - DYSPNOEA [None]
  - GENERALISED ERYTHEMA [None]
